FAERS Safety Report 4508592-9 (Version None)
Quarter: 2004Q4

REPORT INFORMATION
  Report Type: 
  Country: None (occurrence: None)
  Receive Date: 20041123
  Receipt Date: 20040415
  Transmission Date: 20050328
  Serious: No
  Sender: FDA-Public Use
  Company Number: US-GLAXOSMITHKLINE-A0507263A

PATIENT
  Age: 23 Year
  Sex: Female

DRUGS (1)
  1. WELLBUTRIN SR [Suspect]
     Indication: DEPRESSION
     Dosage: 150MG TWICE PER DAY
     Route: 048
     Dates: start: 20040322, end: 20040415

REACTIONS (5)
  - CHEST PAIN [None]
  - DIZZINESS [None]
  - PRURITUS [None]
  - RASH [None]
  - URTICARIA [None]
